FAERS Safety Report 6720054-7 (Version None)
Quarter: 2010Q2

REPORT INFORMATION
  Report Type: 
  Country: None (occurrence: None)
  Receive Date: 20100507
  Receipt Date: 20100422
  Transmission Date: 20101027
  Serious: Yes (Congenital Anomaly)
  Sender: FDA-Public Use
  Company Number: 167-20484-09111521

PATIENT
  Sex: Female

DRUGS (5)
  1. INNOHEP [Suspect]
     Indication: DRUG EXPOSURE DURING PREGNANCY
     Dosage: TRANSPLACENTAL
     Route: 064
     Dates: start: 20050202, end: 20050302
  2. PROSTIN (DINOPROSTONE) [Concomitant]
  3. MEPTID (MEPTAZINOL HYDROCHLORIDE) [Concomitant]
  4. PHENERGAN (PROMETHAZINE) [Concomitant]
  5. SYTONCINON (OXYTOCIN) [Concomitant]

REACTIONS (2)
  - MATERNAL DRUGS AFFECTING FOETUS [None]
  - TALIPES [None]
